FAERS Safety Report 4986995-6 (Version None)
Quarter: 2006Q2

REPORT INFORMATION
  Report Type: 
  Country: None (occurrence: None)
  Receive Date: 20060501
  Receipt Date: 20060427
  Transmission Date: 20061013
  Serious: Yes (Death)
  Sender: FDA-Public Use
  Company Number: US-BOEHRINGER INGELHEIM PHARMACEUTICALS, INC.-2006-BP-04794BP

PATIENT
  Sex: Male
  Weight: 54.09 kg

DRUGS (3)
  1. APTIVUS [Suspect]
     Indication: HIV INFECTION
     Dosage: TPV/R 1000/400 MG
     Route: 048
     Dates: start: 20050918, end: 20060324
  2. DEPAKOTE [Concomitant]
     Indication: CONVULSION
     Route: 048
     Dates: start: 20050328, end: 20060324
  3. TOPAMAX [Concomitant]
     Indication: CONVULSION
     Route: 048
     Dates: start: 20051207, end: 20060324

REACTIONS (4)
  - CARDIAC ARREST [None]
  - CONVULSION [None]
  - CYTOMEGALOVIRUS INFECTION [None]
  - HIV INFECTION [None]
